FAERS Safety Report 13677484 (Version 1)
Quarter: 2017Q2

REPORT INFORMATION
  Report Type: Spontaneous
  Country: US (occurrence: US)
  Receive Date: 20170622
  Receipt Date: 20170622
  Transmission Date: 20170830
  Serious: No
  Sender: FDA-Public Use
  Company Number: US-BAYER-2017-118367

PATIENT
  Sex: Female

DRUGS (2)
  1. CLIMARA [Suspect]
     Active Substance: ESTRADIOL
     Indication: HOT FLUSH
     Dosage: 0.025 ESTRADIOL
     Route: 062
     Dates: start: 2015
  2. ESTRADIOL. [Suspect]
     Active Substance: ESTRADIOL
     Indication: HOT FLUSH
     Dosage: UNK
     Route: 062
     Dates: start: 2009, end: 2015

REACTIONS (6)
  - Application site erythema [Unknown]
  - Dry skin [Unknown]
  - Application site pruritus [Unknown]
  - Application site reaction [Unknown]
  - Application site pain [Unknown]
  - Application site discomfort [None]
